FAERS Safety Report 23530898 (Version 2)
Quarter: 2024Q1

REPORT INFORMATION
  Report Type: Report from Study
  Country: GB (occurrence: GB)
  Receive Date: 20240216
  Receipt Date: 20240220
  Transmission Date: 20240410
  Serious: Yes (Other)
  Sender: FDA-Public Use
  Company Number: GB-002147023-NVSC2022GB180999

PATIENT
  Sex: Female

DRUGS (4)
  1. COSENTYX [Suspect]
     Active Substance: SECUKINUMAB
     Indication: Psoriasis
     Dosage: 300 MG, QMO (TWO PENS)
     Route: 058
     Dates: start: 201505
  2. COSENTYX [Suspect]
     Active Substance: SECUKINUMAB
     Dosage: 300 MG, QMO (TWO PENS)
     Route: 058
  3. COSENTYX [Suspect]
     Active Substance: SECUKINUMAB
     Dosage: 300 MG, QMO (TWO PENS) ON 04 FEB
     Route: 058
  4. ACETAMINOPHEN [Concomitant]
     Active Substance: ACETAMINOPHEN
     Indication: Product used for unknown indication
     Dosage: UNK
     Route: 065

REACTIONS (14)
  - Lower respiratory tract infection [Unknown]
  - Musculoskeletal stiffness [Unknown]
  - Gait disturbance [Unknown]
  - COVID-19 [Unknown]
  - Influenza like illness [Unknown]
  - Cough [Unknown]
  - Chest discomfort [Unknown]
  - Oropharyngeal pain [Unknown]
  - Abdominal pain upper [Unknown]
  - Fatigue [Unknown]
  - Insomnia [Unknown]
  - Pain [Unknown]
  - Nasopharyngitis [Unknown]
  - Product temperature excursion issue [Unknown]
